FAERS Safety Report 11432929 (Version 1)
Quarter: 2015Q3

REPORT INFORMATION
  Report Type: Report from Study
  Country: US (occurrence: US)
  Receive Date: 20150828
  Receipt Date: 20150828
  Transmission Date: 20151125
  Serious: No
  Sender: FDA-Public Use
  Company Number: PHHY2015US097755

PATIENT
  Age: 56 Year
  Sex: Female

DRUGS (1)
  1. GILENYA [Suspect]
     Active Substance: FINGOLIMOD HYDROCHLORIDE
     Indication: MULTIPLE SCLEROSIS
     Dosage: UNK, QD
     Route: 065

REACTIONS (9)
  - Fatigue [Unknown]
  - Headache [Recovered/Resolved]
  - Skin discolouration [Recovered/Resolved]
  - Hot flush [Recovered/Resolved]
  - Dysphagia [Unknown]
  - Micturition urgency [Unknown]
  - Lymphopenia [Unknown]
  - Urinary hesitation [Recovered/Resolved]
  - Muscular weakness [Unknown]

NARRATIVE: CASE EVENT DATE: 20150427
